FAERS Safety Report 6167396-4 (Version None)
Quarter: 2009Q2

REPORT INFORMATION
  Report Type: 
  Country: None (occurrence: None)
  Receive Date: 20090424
  Receipt Date: 20090421
  Transmission Date: 20091009
  Serious: Yes (Death, Life-Threatening, Hospitalization)
  Sender: FDA-Public Use
  Company Number: UG-B.I. PHARMACEUTICALS,INC./RIDGEFIELD-2008-BP-18792BP

PATIENT
  Sex: Female

DRUGS (2)
  1. VIRAMUNE [Suspect]
     Indication: PROPHYLAXIS AGAINST HIV INFECTION
     Dosage: 1.5ML
     Route: 048
     Dates: start: 20081121, end: 20081203
  2. AZT [Concomitant]
     Indication: PROPHYLAXIS AGAINST HIV INFECTION
     Dates: start: 20081118, end: 20081125

REACTIONS (5)
  - CARDIOPULMONARY FAILURE [None]
  - PNEUMONIA [None]
  - RESPIRATORY DISTRESS [None]
  - SEPSIS NEONATAL [None]
  - SHOCK [None]
